FAERS Safety Report 23922916 (Version 1)
Quarter: 2024Q2

REPORT INFORMATION
  Report Type: Spontaneous
  Country: FR (occurrence: FR)
  Receive Date: 20240531
  Receipt Date: 20240531
  Transmission Date: 20240715
  Serious: Yes (Other)
  Sender: FDA-Public Use
  Company Number: FR-AFSSAPS-AM2024000411

PATIENT
  Age: 28 Year
  Sex: Female
  Weight: 57 kg

DRUGS (6)
  1. EPHEDRINE [Suspect]
     Active Substance: EPHEDRINE
     Indication: Procedural hypotension
     Dosage: 20 MICROGRAM, 1 TOTAL
     Route: 042
     Dates: start: 20231115, end: 20231115
  2. STREPTOVARYCIN [Suspect]
     Active Substance: STREPTOVARYCIN
     Indication: Antibiotic prophylaxis
     Dosage: 900 MILLIGRAM, 1 TOTAL
     Route: 042
     Dates: start: 20231115, end: 20231115
  3. KETAMINE [Suspect]
     Active Substance: KETAMINE
     Indication: Induction of anaesthesia
     Dosage: 30 MILLIGRAM, 1 TOTAL
     Route: 042
     Dates: start: 20231115, end: 20231115
  4. PROPOFOL LIPURO [Suspect]
     Active Substance: PROPOFOL
     Indication: Induction of anaesthesia
     Dosage: 250 MILLIGRAM, 1 TOTAL
     Route: 042
     Dates: start: 20231115, end: 20231115
  5. ROCURONIUM [Suspect]
     Active Substance: ROCURONIUM BROMIDE
     Indication: Induction of anaesthesia
     Dosage: 50 MILLIGRAM, 1 TOTAL
     Route: 042
     Dates: start: 20231115, end: 20231115
  6. SUFENTANIL [Suspect]
     Active Substance: SUFENTANIL
     Indication: Induction of anaesthesia
     Dosage: 20 MICROGRAM, 1 TOTAL
     Route: 042
     Dates: start: 20231115, end: 20231115

REACTIONS (1)
  - Anaphylactic reaction [Recovered/Resolved]

NARRATIVE: CASE EVENT DATE: 20231115
